FAERS Safety Report 6720925-1 (Version None)
Quarter: 2010Q2

REPORT INFORMATION
  Report Type: 
  Country: None (occurrence: None)
  Receive Date: 20100512
  Receipt Date: 20100505
  Transmission Date: 20101027
  Serious: Yes (Hospitalization, Other)
  Sender: FDA-Public Use
  Company Number: US-JNJFOC-20100404055

PATIENT
  Sex: Male
  Weight: 73.94 kg

DRUGS (3)
  1. LEVAQUIN [Suspect]
     Indication: PNEUMONIA
     Route: 048
  2. LEVAQUIN [Suspect]
     Route: 048
  3. ALL OTHER THERAPEUTIC PRODUCT [Concomitant]

REACTIONS (13)
  - ABASIA [None]
  - APHASIA [None]
  - BURNING SENSATION [None]
  - DEAFNESS [None]
  - FEELING ABNORMAL [None]
  - FLUID INTAKE REDUCED [None]
  - HYPERAESTHESIA [None]
  - HYPOPHAGIA [None]
  - HYPOTENSION [None]
  - INCORRECT DOSE ADMINISTERED [None]
  - MEMORY IMPAIRMENT [None]
  - PSYCHOTIC DISORDER [None]
  - YELLOW SKIN [None]
